FAERS Safety Report 8603723-3 (Version None)
Quarter: 2012Q3

REPORT INFORMATION
  Report Type: 
  Country: None (occurrence: None)
  Receive Date: 20120817
  Receipt Date: 20120806
  Transmission Date: 20120928
  Serious: Yes (Hospitalization)
  Sender: FDA-Public Use
  Company Number: JP-AMGEN-JPNCT2012050131

PATIENT
  Age: 69 Year
  Sex: Female
  Weight: 53 kg

DRUGS (15)
  1. CYCLOPHOSPHAMIDE [Concomitant]
     Indication: BREAST CANCER
     Dosage: 888 MG, QD
     Route: 041
     Dates: start: 20120110, end: 20120313
  2. MAGMITT [Concomitant]
     Dosage: 330 MG, TID
     Route: 048
  3. GLUCOSE [Concomitant]
     Dosage: 250 ML, QD
     Route: 041
     Dates: start: 20120110, end: 20120313
  4. MUCOSTA [Concomitant]
     Indication: GASTRITIS PROPHYLAXIS
     Dosage: 100 MG, UNK
     Route: 048
     Dates: start: 20111129
  5. DECADRON PHOSPHATE [Concomitant]
     Indication: PROPHYLAXIS
     Dosage: 4 MG, BID
     Route: 048
     Dates: start: 20120109, end: 20120314
  6. PEGFILGRASTIM [Suspect]
     Dosage: 3.6 MG, UNK
     Route: 058
     Dates: start: 20120222, end: 20120222
  7. SEISHOKU [Concomitant]
     Dosage: 200 ML, QD
     Route: 041
     Dates: start: 20120110, end: 20120313
  8. PEGFILGRASTIM [Suspect]
     Indication: CHEMOTHERAPY
     Dosage: 3.6 MG, UNK
     Route: 058
     Dates: start: 20120201, end: 20120201
  9. LOXONIN [Concomitant]
     Indication: ANALGESIC THERAPY
     Dosage: 60 MG, UNK
     Route: 048
     Dates: start: 20111129
  10. PEGFILGRASTIM [Suspect]
     Dosage: 3.6 MG, UNK
     Route: 058
     Dates: start: 20120314
  11. LAC-B [Concomitant]
     Dosage: UNK UNK, TID
     Route: 048
  12. DOCETAXEL [Concomitant]
     Indication: BREAST CANCER
     Dosage: 111 MG, QD
     Route: 041
     Dates: start: 20120110, end: 20120313
  13. GASMOTIN [Concomitant]
     Dosage: 5 MG, TID
     Route: 048
  14. AMLODIPINE [Concomitant]
     Indication: HYPERTENSION
     Dosage: 5 MG, QD
     Route: 048
  15. ENTERONON-R [Concomitant]
     Dosage: UNK UNK, TID
     Route: 048

REACTIONS (2)
  - FEBRILE NEUTROPENIA [None]
  - PNEUMONITIS [None]
